FAERS Safety Report 25652893 (Version 1)
Quarter: 2025Q3

REPORT INFORMATION
  Report Type: Spontaneous
  Country: GB (occurrence: GB)
  Receive Date: 20250807
  Receipt Date: 20250807
  Transmission Date: 20251021
  Serious: Yes (Other)
  Sender: ALKEM
  Company Number: None

PATIENT
  Age: 68 Year
  Sex: Male
  Weight: 86 kg

DRUGS (6)
  1. FINASTERIDE [Suspect]
     Active Substance: FINASTERIDE
     Indication: Adverse drug reaction
     Route: 065
     Dates: start: 2000
  2. FINASTERIDE [Suspect]
     Active Substance: FINASTERIDE
     Route: 065
  3. TAMSULOSIN [Concomitant]
     Active Substance: TAMSULOSIN
     Indication: Urinary hesitation
     Route: 065
  4. TAMSULOSIN [Concomitant]
     Active Substance: TAMSULOSIN
     Route: 065
     Dates: start: 2010
  5. LISINOPRIL [Concomitant]
     Active Substance: LISINOPRIL
     Indication: Hypertension
     Route: 065
  6. DESLORATADINE [Concomitant]
     Active Substance: DESLORATADINE
     Indication: Seasonal allergy
     Route: 065

REACTIONS (2)
  - Constipation [Not Recovered/Not Resolved]
  - Medication error [Unknown]

NARRATIVE: CASE EVENT DATE: 20250718
